FAERS Safety Report 9721312 (Version 1)
Quarter: 2013Q4

REPORT INFORMATION
  Report Type: Spontaneous
  Country: US (occurrence: US)
  Receive Date: 20131129
  Receipt Date: 20131129
  Transmission Date: 20140711
  Serious: No
  Sender: FDA-Public Use
  Company Number: US-PFIZER INC-2013339956

PATIENT
  Age: 32 Year
  Sex: Female
  Weight: 49.9 kg

DRUGS (4)
  1. DILANTIN [Suspect]
     Indication: CONVULSION
     Dosage: UNK
     Route: 048
     Dates: start: 20130303, end: 2013
  2. DILANTIN [Suspect]
     Dosage: 100 MG, 3X/DAY
     Route: 048
     Dates: start: 2013
  3. MELOXICAM [Concomitant]
     Dosage: UNK, 1X/DAY
  4. NEURONTIN [Concomitant]
     Dosage: UNK, 3X/DAY

REACTIONS (1)
  - Drug ineffective [Unknown]
